FAERS Safety Report 8167686-X (Version None)
Quarter: 2012Q1

REPORT INFORMATION
  Report Type: 
  Country: None (occurrence: None)
  Receive Date: 20120227
  Receipt Date: 20120217
  Transmission Date: 20120608
  Serious: Yes (Death)
  Sender: FDA-Public Use
  Company Number: FR-BRISTOL-MYERS SQUIBB COMPANY-16396848

PATIENT
  Age: 62 Year
  Sex: Female

DRUGS (12)
  1. OSYROL LASIX [Suspect]
     Indication: HYPERTENSION
     Dosage: 1DF=50/20MG
  2. ALBUTEROL SULFATE AUTOHALER [Concomitant]
     Indication: ASTHMA
  3. CETIRIZINE [Concomitant]
     Indication: ASTHMA
  4. CLONAZEPAM [Concomitant]
     Indication: DEPRESSION
  5. FLUOXETINE HCL [Concomitant]
  6. METFORMIN HCL [Suspect]
     Indication: TYPE 2 DIABETES MELLITUS
  7. PROCORALAN [Suspect]
     Indication: CARDIAC FAILURE
     Dates: start: 20100909
  8. FORMOTEROL FUMARATE [Concomitant]
     Indication: ASTHMA
  9. RABEPRAZOLE SODIUM [Concomitant]
  10. OSYROL LASIX [Suspect]
     Indication: RENAL FAILURE
     Dosage: 1DF=50/20MG
  11. LORMETAZEPAM [Concomitant]
     Indication: DEPRESSION
  12. DILTIAZEM HCL [Suspect]
     Indication: HYPERTENSION

REACTIONS (7)
  - TORSADE DE POINTES [None]
  - CARDIAC ARREST [None]
  - HYPOKALAEMIA [None]
  - ELECTROCARDIOGRAM QT PROLONGED [None]
  - BRAIN DEATH [None]
  - BLOOD CREATININE ABNORMAL [None]
  - ACIDOSIS [None]
